FAERS Safety Report 20990198 (Version 1)
Quarter: 2022Q2

REPORT INFORMATION
  Report Type: Spontaneous
  Country: US (occurrence: US)
  Receive Date: 20220621
  Receipt Date: 20220621
  Transmission Date: 20220721
  Serious: Yes (Other)
  Sender: FDA-Public Use
  Company Number: US-MALLINCKRODT-T202203114

PATIENT
  Sex: Female
  Weight: 93 kg

DRUGS (1)
  1. H.P. ACTHAR [Suspect]
     Active Substance: CORTICOTROPIN
     Indication: Rheumatoid arthritis
     Dosage: 80 UNITS/1 MILLILITER, TWICE A WEEK
     Route: 058
     Dates: start: 202205

REACTIONS (2)
  - Facial bones fracture [Unknown]
  - COVID-19 [Unknown]
